FAERS Safety Report 13430870 (Version 1)
Quarter: 2017Q2

REPORT INFORMATION
  Report Type: Spontaneous
  Country: US (occurrence: US)
  Receive Date: 20170411
  Receipt Date: 20170411
  Transmission Date: 20170830
  Serious: Yes (Hospitalization)
  Sender: FDA-Public Use
  Company Number: None

PATIENT
  Age: 67 Year
  Sex: Male
  Weight: 105.4 kg

DRUGS (1)
  1. SPIRONOLACTONE. [Suspect]
     Active Substance: SPIRONOLACTONE
     Route: 048
     Dates: start: 20130514, end: 20130626

REACTIONS (3)
  - Hyperkalaemia [None]
  - Electrocardiogram T wave abnormal [None]
  - Renal impairment [None]

NARRATIVE: CASE EVENT DATE: 20130626
